FAERS Safety Report 6389827-7 (Version None)
Quarter: 2009Q4

REPORT INFORMATION
  Report Type: 
  Country: None (occurrence: None)
  Receive Date: 20091006
  Receipt Date: 20080922
  Transmission Date: 20100525
  Serious: No
  Sender: FDA-Public Use
  Company Number: US-BRISTOL-MYERS SQUIBB COMPANY-14290084

PATIENT
  Age: 59 Year
  Sex: Male

DRUGS (7)
  1. AVAPRO [Suspect]
     Indication: HYPERTENSION
     Route: 048
     Dates: start: 20030528
  2. GLUCOVANCE [Suspect]
     Indication: DIABETES MELLITUS
     Dosage: 1 DOSAGE FORM= 2.5/500MG.
     Route: 048
     Dates: start: 20030528
  3. LIPITOR [Suspect]
  4. LORATADINE [Concomitant]
  5. LANTUS [Concomitant]
     Dosage: 1 DOSAGE FORM= 54 UNITS
  6. NAPROXEN [Concomitant]
  7. LYRICA [Concomitant]

REACTIONS (2)
  - FEELING HOT [None]
  - PHOTOSENSITIVITY REACTION [None]
